FAERS Safety Report 14259917 (Version 2)
Quarter: 2018Q2

REPORT INFORMATION
  Report Type: Spontaneous
  Country: US (occurrence: US)
  Receive Date: 20171207
  Receipt Date: 20180620
  Transmission Date: 20180711
  Serious: Yes (Other)
  Sender: FDA-Public Use
  Company Number: US-ASTRAZENECA-2017SF21665

PATIENT
  Age: 61 Year
  Sex: Female
  Weight: 90.7 kg

DRUGS (25)
  1. METFORMIN HYDROCHLORIDE. [Concomitant]
     Active Substance: METFORMIN HYDROCHLORIDE
     Dosage: 500.0MG UNKNOWN
     Route: 048
  2. ACETAMINOPHEN-COD [Concomitant]
     Active Substance: ACETAMINOPHEN\CODEINE PHOSPHATE
     Route: 065
  3. GABAPENTIN. [Concomitant]
     Active Substance: GABAPENTIN
     Dosage: 300.0MG UNKNOWN
     Route: 065
  4. AMLODIPINE [Concomitant]
     Active Substance: AMLODIPINE BESYLATE
     Indication: BLOOD PRESSURE MEASUREMENT
     Route: 065
  5. CALCITRIOL. [Concomitant]
     Active Substance: CALCITRIOL
     Indication: RENAL DISORDER
     Route: 065
  6. TYLENOL [Concomitant]
     Active Substance: ACETAMINOPHEN
     Route: 065
  7. ZETIA [Concomitant]
     Active Substance: EZETIMIBE
     Route: 048
  8. CHLORTHALIDONE. [Concomitant]
     Active Substance: CHLORTHALIDONE
     Route: 048
  9. BENADRYL [Concomitant]
     Active Substance: DIPHENHYDRAMINE HYDROCHLORIDE
     Indication: MULTIPLE ALLERGIES
     Route: 065
  10. AMOXICILLIN. [Concomitant]
     Active Substance: AMOXICILLIN
     Dosage: 500.0MG UNKNOWN
     Route: 065
  11. LEVEMIN [Concomitant]
     Indication: DIABETES MELLITUS
     Route: 065
  12. DIAZEPAM. [Concomitant]
     Active Substance: DIAZEPAM
     Dosage: 5.0MG UNKNOWN
     Route: 048
  13. NEXIUM [Suspect]
     Active Substance: ESOMEPRAZOLE MAGNESIUM
     Indication: GASTROOESOPHAGEAL REFLUX DISEASE
     Route: 048
     Dates: start: 2011, end: 2013
  14. NEXIUM [Suspect]
     Active Substance: ESOMEPRAZOLE MAGNESIUM
     Indication: GASTROOESOPHAGEAL REFLUX DISEASE
     Route: 048
     Dates: start: 2011, end: 2013
  15. IRON [Concomitant]
     Active Substance: IRON
     Indication: ANAEMIA
     Route: 065
  16. SIMVASTATIN. [Concomitant]
     Active Substance: SIMVASTATIN
     Dosage: 40.0MG UNKNOWN
     Route: 048
  17. NEXIUM [Suspect]
     Active Substance: ESOMEPRAZOLE MAGNESIUM
     Indication: GASTROOESOPHAGEAL REFLUX DISEASE
     Route: 048
     Dates: start: 2015
  18. ASPIRIN. [Concomitant]
     Active Substance: ASPIRIN
     Route: 065
  19. MILK OF MAGNESIA [Concomitant]
     Active Substance: MAGNESIUM HYDROXIDE
     Route: 065
  20. LISINOPRIL. [Concomitant]
     Active Substance: LISINOPRIL
     Indication: BLOOD PRESSURE MEASUREMENT
     Route: 065
  21. LEVOTHYROXINE. [Concomitant]
     Active Substance: LEVOTHYROXINE
     Indication: THYROID DISORDER
     Route: 065
  22. CIPROFLOXACIN. [Concomitant]
     Active Substance: CIPROFLOXACIN
     Dosage: 500.0MG UNKNOWN
     Route: 048
  23. NEXIUM [Suspect]
     Active Substance: ESOMEPRAZOLE MAGNESIUM
     Indication: GASTROOESOPHAGEAL REFLUX DISEASE
     Route: 048
     Dates: start: 2015
  24. PREVACID [Suspect]
     Active Substance: LANSOPRAZOLE
     Indication: GASTROOESOPHAGEAL REFLUX DISEASE
     Route: 065
     Dates: start: 2006, end: 2007
  25. IBUPROFEN. [Concomitant]
     Active Substance: IBUPROFEN
     Route: 048

REACTIONS (2)
  - Chronic kidney disease [Unknown]
  - Acute kidney injury [Unknown]

NARRATIVE: CASE EVENT DATE: 2015
